FAERS Safety Report 4621877-0 (Version None)
Quarter: 2005Q1

REPORT INFORMATION
  Report Type: 
  Country: None (occurrence: None)
  Receive Date: 20050329
  Receipt Date: 20050328
  Transmission Date: 20050727
  Serious: Yes (Other)
  Sender: FDA-Public Use
  Company Number: NSADSS2003021126

PATIENT
  Sex: Female
  Weight: 88.91 kg

DRUGS (5)
  1. LEVAQUIN [Suspect]
     Indication: OTITIS MEDIA
     Route: 049
     Dates: start: 20010928
  2. IBUPROFEN [Concomitant]
     Indication: DRUG USE FOR UNKNOWN INDICATION
     Route: 065
  3. INDERAL [Concomitant]
     Indication: DRUG USE FOR UNKNOWN INDICATION
     Route: 065
  4. AMOXIL [Concomitant]
     Dates: start: 20010911, end: 20010921
  5. NAPROSYN [Concomitant]

REACTIONS (8)
  - ARTHRALGIA [None]
  - ARTHROPATHY [None]
  - EPIPHYSEAL FRACTURE [None]
  - EPIPHYSES PREMATURE FUSION [None]
  - LOWER LIMB DEFORMITY [None]
  - MYALGIA [None]
  - PAIN IN EXTREMITY [None]
  - UPPER LIMB FRACTURE [None]
